FAERS Safety Report 16369743 (Version 2)
Quarter: 2019Q2

REPORT INFORMATION
  Report Type: Spontaneous
  Country: DE (occurrence: DE)
  Receive Date: 20190530
  Receipt Date: 20190606
  Transmission Date: 20190711
  Serious: Yes (Other)
  Sender: FDA-Public Use
  Company Number: DE-ROCHE-2327721

PATIENT
  Age: 26 Year
  Sex: Male

DRUGS (1)
  1. HEMLIBRA [Suspect]
     Active Substance: EMICIZUMAB-KXWH
     Indication: HAEMOPHILIA A WITHOUT INHIBITORS
     Dosage: SAME DOSE AGAIN ON 10-MAY-2019 AND ON 17-MAY-2019.
     Route: 058
     Dates: start: 20190503

REACTIONS (8)
  - Inflammation [Unknown]
  - Cardiovascular disorder [Recovered/Resolved]
  - Hot flush [Recovered/Resolved]
  - Hyperhidrosis [Unknown]
  - Hypersensitivity [Unknown]
  - Haemarthrosis [Unknown]
  - Chest discomfort [Recovered/Resolved]
  - Sensation of foreign body [Recovered/Resolved]

NARRATIVE: CASE EVENT DATE: 20190519
